FAERS Safety Report 4906595-3 (Version None)
Quarter: 2006Q1

REPORT INFORMATION
  Report Type: 
  Country: None (occurrence: None)
  Receive Date: 20060209
  Receipt Date: 20051122
  Transmission Date: 20060701
  Serious: Yes (Hospitalization, Other)
  Sender: FDA-Public Use
  Company Number: CA-GLAXOSMITHKLINE-A0583929A

PATIENT
  Age: 76 Year
  Sex: Male
  Weight: 96 kg

DRUGS (5)
  1. AVANDIA [Suspect]
     Indication: DIABETES MELLITUS
     Dosage: 4MG PER DAY
     Route: 048
     Dates: start: 20010216, end: 20051113
  2. ATACAND [Concomitant]
     Indication: HYPERTENSION
     Dosage: 16MG PER DAY
     Dates: start: 20000331
  3. DIAMICRON [Concomitant]
     Indication: DIABETES MELLITUS
     Dosage: 80MG TWICE PER DAY
  4. NORVASC [Concomitant]
     Indication: HYPERTENSION
     Dosage: 10MG PER DAY
     Dates: start: 20040426, end: 20051113
  5. SYNTHROID [Concomitant]
     Indication: HYPOTHYROIDISM
     Dosage: .088MG PER DAY
     Dates: start: 20030503

REACTIONS (4)
  - CHEST PAIN [None]
  - CORONARY ARTERY DISEASE [None]
  - MYOCARDIAL INFARCTION [None]
  - TROPONIN INCREASED [None]
